FAERS Safety Report 21010841 (Version 1)
Quarter: 2022Q2

REPORT INFORMATION
  Report Type: Spontaneous
  Country: CN (occurrence: None)
  Receive Date: 20220627
  Receipt Date: 20220627
  Transmission Date: 20220720
  Serious: Yes (Other)
  Sender: FDA-Public Use
  Company Number: CN-ROCHE-3124009

PATIENT
  Age: 59 Year
  Sex: Female

DRUGS (20)
  1. AVASTIN [Suspect]
     Active Substance: BEVACIZUMAB
     Indication: Ovarian cancer
     Dosage: PACLITAXEL + CARBOPLATIN + BEVACIZUMAB
     Route: 033
     Dates: start: 20201111
  2. AVASTIN [Suspect]
     Active Substance: BEVACIZUMAB
     Dosage: PACLITAXEL + CARBOPLATIN + BEVACIZUMAB
     Route: 033
     Dates: start: 20201208
  3. AVASTIN [Suspect]
     Active Substance: BEVACIZUMAB
     Dosage: PACLITAXEL ALBUMIN BOUND+ BEVACIZUMAB
     Route: 033
     Dates: start: 20210115
  4. AVASTIN [Suspect]
     Active Substance: BEVACIZUMAB
     Dosage: PACLITAXEL ALBUMIN BOUND+ BEVACIZUMAB
     Route: 033
     Dates: start: 20210206
  5. AVASTIN [Suspect]
     Active Substance: BEVACIZUMAB
     Dosage: BEVACIZUMAB
     Route: 033
     Dates: start: 20210227
  6. AVASTIN [Suspect]
     Active Substance: BEVACIZUMAB
     Dosage: TORIPALIMAB + BEVACIZUMAB
     Route: 033
     Dates: start: 20210323
  7. PACLITAXEL [Concomitant]
     Active Substance: PACLITAXEL
     Indication: Ovarian cancer
     Dosage: PACLITAXEL + CARBOPLATIN + BEVACIZUMAB
     Route: 065
     Dates: start: 20201111
  8. PACLITAXEL [Concomitant]
     Active Substance: PACLITAXEL
     Dosage: PACLITAXEL + CARBOPLATIN + BEVACIZUMAB
     Route: 065
     Dates: start: 20201208
  9. CARBOPLATIN [Concomitant]
     Active Substance: CARBOPLATIN
     Indication: Ovarian cancer
     Dosage: PACLITAXEL + CARBOPLATIN + BEVACIZUMAB
     Route: 065
     Dates: start: 20201111
  10. CARBOPLATIN [Concomitant]
     Active Substance: CARBOPLATIN
     Dosage: PACLITAXEL + CARBOPLATIN + BEVACIZUMAB
     Route: 065
     Dates: start: 20201208
  11. TORIPALIMAB [Concomitant]
     Active Substance: TORIPALIMAB
     Indication: Ovarian cancer
     Dosage: TORIPALIMAB + BEVACIZUMAB
     Route: 033
     Dates: start: 20210323
  12. SINTILIMAB [Concomitant]
     Active Substance: SINTILIMAB
     Indication: Ovarian cancer
     Dosage: SINTILIMAB+ PAMIPARIB + LENVATINIB MESILATE
     Route: 065
     Dates: start: 202107, end: 20211110
  13. SINTILIMAB [Concomitant]
     Active Substance: SINTILIMAB
     Dosage: SINTILIMAB+ PAMIPARIB + DISITAMAB VEDOTIN
     Route: 065
     Dates: start: 20211202, end: 20220416
  14. PAMIPARIB [Concomitant]
     Active Substance: PAMIPARIB
     Indication: Ovarian cancer
     Dosage: SINTILIMAB+ PAMIPARIB + LENVATINIB MESILATE
     Route: 065
     Dates: start: 202107, end: 20211110
  15. PAMIPARIB [Concomitant]
     Active Substance: PAMIPARIB
     Dosage: SINTILIMAB+ PAMIPARIB + DISITAMAB VEDOTIN
     Route: 065
     Dates: start: 20211202, end: 20220416
  16. PAMIPARIB [Concomitant]
     Active Substance: PAMIPARIB
     Dosage: PAMIPARIB + EVEROLIMUS
     Route: 065
     Dates: start: 20220610
  17. LENVATINIB MESYLATE [Concomitant]
     Active Substance: LENVATINIB MESYLATE
     Indication: Ovarian cancer
     Dosage: SINTILIMAB+ PAMIPARIB + LENVATINIB MESILATE
     Route: 065
     Dates: start: 202107, end: 20211110
  18. EVEROLIMUS [Concomitant]
     Active Substance: EVEROLIMUS
     Indication: Ovarian cancer
     Dosage: PAMIPARIB + EVEROLIMUS
     Route: 065
     Dates: start: 20220610
  19. PACLITAXEL [Concomitant]
     Active Substance: PACLITAXEL
     Indication: Ovarian cancer
     Dosage: PACLITAXEL ALBUMIN BOUND+ BEVACIZUMAB
     Route: 065
     Dates: start: 20210115
  20. PACLITAXEL [Concomitant]
     Active Substance: PACLITAXEL
     Dosage: BEVACIZUMAB+PACLITAXEL ALBUMIN BOUND
     Route: 065
     Dates: start: 20210206

REACTIONS (2)
  - Myelosuppression [Unknown]
  - Off label use [Unknown]
